FAERS Safety Report 7002556-1 (Version None)
Quarter: 2010Q3

REPORT INFORMATION
  Report Type: 
  Country: None (occurrence: None)
  Receive Date: 20100920
  Receipt Date: 20100315
  Transmission Date: 20110219
  Serious: No
  Sender: FDA-Public Use
  Company Number: US-ASTRAZENECA-2010SE11157

PATIENT
  Sex: Female
  Weight: 68 kg

DRUGS (2)
  1. SEROQUEL XR [Suspect]
     Indication: BIPOLAR DISORDER
     Route: 048
  2. PRAVASTATIN [Concomitant]
     Indication: BLOOD CHOLESTEROL

REACTIONS (2)
  - OEDEMA [None]
  - WEIGHT INCREASED [None]
